FAERS Safety Report 4596560-0 (Version None)
Quarter: 2005Q1

REPORT INFORMATION
  Report Type: 
  Country: None (occurrence: None)
  Receive Date: 20050228
  Receipt Date: 20050215
  Transmission Date: 20050727
  Serious: Yes (Other)
  Sender: FDA-Public Use
  Company Number: 2005031582

PATIENT
  Sex: Female

DRUGS (1)
  1. BEXTRA [Suspect]
     Indication: BACK PAIN
     Dosage: 20 MG (DAILY), ORAL
     Route: 048

REACTIONS (3)
  - ARRHYTHMIA [None]
  - DIZZINESS [None]
  - SYNCOPE [None]
